FAERS Safety Report 9613902 (Version 4)
Quarter: 2013Q4

REPORT INFORMATION
  Report Type: Spontaneous
  Country: US (occurrence: US)
  Receive Date: 20131010
  Receipt Date: 20131016
  Transmission Date: 20140711
  Serious: Yes (Hospitalization, Other)
  Sender: FDA-Public Use
  Company Number: US-ROCHE-1280614

PATIENT
  Sex: Female

DRUGS (5)
  1. PEGASYS [Suspect]
     Indication: CHRONIC HEPATITIS C
     Dosage: PROCLICK AUTOINJECTOR
     Route: 058
     Dates: start: 20130807
  2. RIBASPHERE [Suspect]
     Indication: CHRONIC HEPATITIS C
     Dosage: IN DIVIDED DOSES ORALLY 400/600 FOR 28 WEEKS
     Route: 048
     Dates: start: 20130807
  3. ZITHROMAX Z-PAK [Concomitant]
     Indication: ANAEMIA
  4. EFFEXOR [Concomitant]
  5. TRAZODONE [Concomitant]

REACTIONS (25)
  - Ammonia increased [Unknown]
  - Loss of consciousness [Unknown]
  - Musculoskeletal pain [Unknown]
  - Fatigue [Unknown]
  - Dry mouth [Unknown]
  - Nausea [Unknown]
  - Vertigo [Unknown]
  - Visual impairment [Unknown]
  - Confusional state [Unknown]
  - Oral mucosal blistering [Unknown]
  - Chest pain [Unknown]
  - Dyspnoea [Unknown]
  - Nausea [Unknown]
  - Hyperhidrosis [Unknown]
  - Anaemia [Unknown]
  - Tongue blistering [Unknown]
  - Blister [Unknown]
  - Arrhythmia [Unknown]
  - Dehydration [Unknown]
  - Candida infection [Unknown]
  - Decreased appetite [Unknown]
  - Insomnia [Unknown]
  - Depression [Unknown]
  - Delusion [Unknown]
  - Hypotension [Unknown]
